FAERS Safety Report 21548888 (Version 1)
Quarter: 2022Q4

REPORT INFORMATION
  Report Type: Spontaneous
  Country: US (occurrence: None)
  Receive Date: 20221102
  Receipt Date: 20221102
  Transmission Date: 20230112
  Serious: No
  Sender: FDA-Public Use
  Company Number: None

PATIENT
  Age: 33 Year
  Sex: Female

DRUGS (6)
  1. HUMIRA [Suspect]
     Active Substance: ADALIMUMAB
     Indication: Colitis ulcerative
     Dosage: OTHER FREQUENCY : EVERY TWO WEEKS;?
     Route: 058
     Dates: start: 20220228, end: 20221024
  2. HUMIRA [Suspect]
     Active Substance: ADALIMUMAB
     Indication: Eczema
  3. HUMIRA [Suspect]
     Active Substance: ADALIMUMAB
     Indication: Psoriasis
  4. Aspirin low dose 81mg [Concomitant]
  5. PREDNISONE [Concomitant]
     Active Substance: PREDNISONE
  6. Fish oil 1000mg [Concomitant]

REACTIONS (2)
  - Therapeutic product effect decreased [None]
  - Therapy cessation [None]
